FAERS Safety Report 25539454 (Version 3)
Quarter: 2025Q3

REPORT INFORMATION
  Report Type: Spontaneous
  Country: US (occurrence: US)
  Receive Date: 20250710
  Receipt Date: 20250801
  Transmission Date: 20251021
  Serious: No
  Sender: MYLAN
  Company Number: US-MYLANLABS-2025M1055469

PATIENT
  Age: 53 Year
  Sex: Female
  Weight: 58.97 kg

DRUGS (4)
  1. EPINEPHRINE [Suspect]
     Active Substance: EPINEPHRINE
     Indication: Anaphylactic reaction
  2. EPINEPHRINE [Suspect]
     Active Substance: EPINEPHRINE
     Route: 065
  3. EPINEPHRINE [Suspect]
     Active Substance: EPINEPHRINE
     Route: 065
  4. EPINEPHRINE [Suspect]
     Active Substance: EPINEPHRINE

REACTIONS (1)
  - Product quality issue [Unknown]

NARRATIVE: CASE EVENT DATE: 20250625
